FAERS Safety Report 11624621 (Version 1)
Quarter: 2015Q4

REPORT INFORMATION
  Report Type: Spontaneous
  Country: US (occurrence: US)
  Receive Date: 20151013
  Receipt Date: 20151013
  Transmission Date: 20160304
  Serious: No
  Sender: FDA-Public Use
  Company Number: US-GUERBET LLC-1042860

PATIENT
  Age: 73 Year
  Sex: Male

DRUGS (1)
  1. OXILAN [Suspect]
     Active Substance: IOXILAN
     Indication: COMPUTERISED TOMOGRAM
     Route: 042
     Dates: start: 20020625, end: 20020625

REACTIONS (3)
  - Urticaria [Recovered/Resolved]
  - Hypersensitivity [None]
  - Pruritus [Recovered/Resolved]

NARRATIVE: CASE EVENT DATE: 20020625
